FAERS Safety Report 11491528 (Version 5)
Quarter: 2016Q1

REPORT INFORMATION
  Report Type: Report from Study
  Country: US (occurrence: US)
  Receive Date: 20150910
  Receipt Date: 20160308
  Transmission Date: 20160525
  Serious: No
  Sender: FDA-Public Use
  Company Number: PHEH2015US006386

PATIENT
  Age: 47 Year
  Sex: Male
  Weight: 65.76 kg

DRUGS (1)
  1. GILENYA [Suspect]
     Active Substance: FINGOLIMOD HYDROCHLORIDE
     Indication: MULTIPLE SCLEROSIS
     Dosage: 0.5 MG, QD
     Route: 048
     Dates: start: 20150327

REACTIONS (17)
  - Melanocytic naevus [Unknown]
  - Rapid eye movements sleep abnormal [Unknown]
  - Pain [Not Recovered/Not Resolved]
  - Myalgia [Not Recovered/Not Resolved]
  - Balance disorder [Not Recovered/Not Resolved]
  - Weight decreased [Not Recovered/Not Resolved]
  - Scab [Unknown]
  - Dizziness [Not Recovered/Not Resolved]
  - Sinus bradycardia [Unknown]
  - Headache [Unknown]
  - Herpes zoster [Recovering/Resolving]
  - Electrocardiogram abnormal [Recovered/Resolved]
  - Fatigue [Not Recovered/Not Resolved]
  - Renal cyst [Unknown]
  - Exposure to toxic agent [Unknown]
  - Poor quality sleep [Not Recovered/Not Resolved]
  - Blister [Recovering/Resolving]

NARRATIVE: CASE EVENT DATE: 20150327
